FAERS Safety Report 20091942 (Version 1)
Quarter: 2021Q4

REPORT INFORMATION
  Report Type: Spontaneous
  Country: US (occurrence: None)
  Receive Date: 20211119
  Receipt Date: 20211119
  Transmission Date: 20220303
  Serious: No
  Sender: FDA-Public Use
  Company Number: None

PATIENT
  Age: 37 Year
  Sex: Female
  Weight: 102 kg

DRUGS (1)
  1. NALTREXONE HYDROCHLORIDE AND BUPROPION HYDROCHLORIDE EXTENDED-RELEASE [Suspect]
     Active Substance: BUPROPION HYDROCHLORIDE\NALTREXONE HYDROCHLORIDE
     Indication: Weight control
     Dosage: 90/8  MG  EVERY DAY  PO
     Route: 048

REACTIONS (2)
  - Nausea [None]
  - Vomiting [None]
